FAERS Safety Report 5786029-X (Version None)
Quarter: 2008Q2

REPORT INFORMATION
  Report Type: 
  Country: None (occurrence: None)
  Receive Date: 20080620
  Receipt Date: 20080620
  Transmission Date: 20081010
  Serious: Yes (Life-Threatening, Hospitalization)
  Sender: FDA-Public Use
  Company Number: None

PATIENT
  Age: 71 Year
  Sex: Male
  Weight: 64.8 kg

DRUGS (1)
  1. KAYEXALATE [Suspect]
     Indication: HYPERKALAEMIA
     Dosage: 60 GRAMS 1 TIME PO
     Route: 048
     Dates: start: 20080616, end: 20080616

REACTIONS (1)
  - NO ADVERSE EVENT [None]
